FAERS Safety Report 10562304 (Version 2)
Quarter: 2014Q4

REPORT INFORMATION
  Report Type: Spontaneous
  Country: FR (occurrence: None)
  Receive Date: 20141031
  Receipt Date: 20141124
  Transmission Date: 20150529
  Serious: Yes (Hospitalization)
  Sender: FDA-Public Use
  Company Number: 2014-20602

PATIENT
  Age: 83 Year
  Sex: Male

DRUGS (6)
  1. GINKGO BILOBA EXTRACT W/TROXERUTIN [Suspect]
     Active Substance: GINKGO\TROXERUTIN
     Route: 048
     Dates: end: 20140918
  2. VITABACT (PICLOXYDINE DIHYDROCHLORIDE) [Concomitant]
  3. EYLEA [Suspect]
     Active Substance: AFLIBERCEPT
     Indication: AGE-RELATED MACULAR DEGENERATION
     Dosage: 1 DF, Q2MON
     Route: 031
     Dates: start: 20131219, end: 20140606
  4. OMACOR [Suspect]
     Active Substance: OMEGA-3-ACID ETHYL ESTERS
     Dosage: 1 DF
     Route: 048
  5. VASTAREL [Suspect]
     Active Substance: TRIMETAZIDINE DIHYDROCHLORIDE
     Route: 048
  6. ASCORBIC ACID, BETACAROTENE, CUPRIC OXIDE, DL-ALPHA TOCOPHERYL ACETATE, ZINC OXIDE [Suspect]
     Active Substance: .ALPHA.-TOCOPHEROL ACETATE, DL-\.BETA.-CAROTENE\ASCORBIC ACID\CUPRIC OXIDE\ZINC OXIDE
     Dosage: 1 DF
     Route: 048

REACTIONS (2)
  - Dermatitis exfoliative [None]
  - Eosinophilia [None]

NARRATIVE: CASE EVENT DATE: 201408
